FAERS Safety Report 17393317 (Version 2)
Quarter: 2020Q1

REPORT INFORMATION
  Report Type: Spontaneous
  Country: GB (occurrence: GB)
  Receive Date: 20200207
  Receipt Date: 20200218
  Transmission Date: 20200409
  Serious: Yes (Other)
  Sender: FDA-Public Use
  Company Number: GB-SA-2020SA030435

PATIENT

DRUGS (8)
  1. CYTARABINE. [Suspect]
     Active Substance: CYTARABINE
     Dosage: 200 MG/M2, DAY -5 TO -2
  2. CYCLOSPORINE. [Suspect]
     Active Substance: CYCLOSPORINE
     Indication: PROPHYLAXIS AGAINST GRAFT VERSUS HOST DISEASE
     Dosage: 200 TO 300 NG/L
  3. ALEMTUZUMAB [Suspect]
     Active Substance: ALEMTUZUMAB
     Indication: BONE MARROW CONDITIONING REGIMEN
  4. LASTET [Suspect]
     Active Substance: ETOPOSIDE
     Dosage: 200 MG/M2 (DAYS -5 TO -2 )
  5. CYTARABINE. [Suspect]
     Active Substance: CYTARABINE
     Indication: HODGKIN^S DISEASE
  6. MELPHALAN. [Suspect]
     Active Substance: MELPHALAN
     Indication: HODGKIN^S DISEASE
     Dosage: 140 MG/M2 (DAY -1)
  7. LASTET [Suspect]
     Active Substance: ETOPOSIDE
     Indication: HODGKIN^S DISEASE
     Dosage: UNK
  8. ALEMTUZUMAB [Suspect]
     Active Substance: ALEMTUZUMAB
     Indication: HODGKIN^S DISEASE
     Dosage: 10 MG (ON DAY -5 TO -1)
     Route: 042

REACTIONS (2)
  - Pericardial effusion [Unknown]
  - Cytopenia [Unknown]
